FAERS Safety Report 17242635 (Version 5)
Quarter: 2020Q2

REPORT INFORMATION
  Report Type: Spontaneous
  Country: US (occurrence: US)
  Receive Date: 20200107
  Receipt Date: 20200526
  Transmission Date: 20200713
  Serious: No
  Sender: FDA-Public Use
  Company Number: US-SA-2020SA003632

PATIENT
  Age: 59 Year
  Sex: Female

DRUGS (1)
  1. DUPIXENT [Suspect]
     Active Substance: DUPILUMAB
     Indication: DERMATITIS ATOPIC
     Dosage: 300 MG, QOW
     Route: 058
     Dates: start: 20191104

REACTIONS (15)
  - Pain in extremity [Unknown]
  - Fatigue [Unknown]
  - Eye swelling [Unknown]
  - Dry skin [Unknown]
  - Muscle spasms [Unknown]
  - Eye discharge [Unknown]
  - Eye irritation [Unknown]
  - Discharge [Unknown]
  - Drug ineffective [Unknown]
  - Back pain [Unknown]
  - Rash papular [Unknown]
  - Eye pain [Unknown]
  - Ocular hyperaemia [Unknown]
  - Skin irritation [Unknown]
  - Madarosis [Unknown]

NARRATIVE: CASE EVENT DATE: 202001
